FAERS Safety Report 23116928 (Version 1)
Quarter: 2023Q4

REPORT INFORMATION
  Report Type: Spontaneous
  Country: AT (occurrence: AT)
  Receive Date: 20231027
  Receipt Date: 20231027
  Transmission Date: 20240109
  Serious: Yes (Other)
  Sender: FDA-Public Use
  Company Number: AT-SUN PHARMACEUTICAL INDUSTRIES LTD-2013R1-64740

PATIENT
  Sex: Female

DRUGS (6)
  1. LEVETIRACETAM [Suspect]
     Active Substance: LEVETIRACETAM
     Indication: Epilepsy
     Dosage: 40MG/KG BODY WT PER DAY
     Route: 063
  2. LEVETIRACETAM [Suspect]
     Active Substance: LEVETIRACETAM
     Dosage: 40MG/KG BODY WT PER DAY
     Route: 064
  3. PHENOBARBITAL [Suspect]
     Active Substance: PHENOBARBITAL
     Indication: Epilepsy
     Dosage: UNK
     Route: 063
  4. PHENOBARBITAL [Suspect]
     Active Substance: PHENOBARBITAL
     Dosage: UNK
     Route: 064
  5. PRIMIDONE [Suspect]
     Active Substance: PRIMIDONE
     Indication: Epilepsy
     Dosage: 2.5 MG/KG/DAY
     Route: 063
  6. PRIMIDONE [Suspect]
     Active Substance: PRIMIDONE
     Dosage: 2.5 MG/KG/DAY
     Route: 064

REACTIONS (2)
  - Drug withdrawal convulsions [Recovered/Resolved]
  - Foetal exposure during pregnancy [Recovered/Resolved]
